FAERS Safety Report 7903165-X (Version None)
Quarter: 2011Q4

REPORT INFORMATION
  Report Type: 
  Country: None (occurrence: None)
  Receive Date: 20111109
  Receipt Date: 20111028
  Transmission Date: 20120403
  Serious: Yes (Other)
  Sender: FDA-Public Use
  Company Number: JP-TEVA-306338USA

PATIENT
  Sex: Male

DRUGS (4)
  1. METALITE [Concomitant]
     Dosage: 750 MG- 1500 MG
     Route: 048
     Dates: start: 20110415
  2. PREDNISOLONE [Concomitant]
     Dosage: 60-125 MG
     Route: 048
     Dates: start: 20110419
  3. ZINC ACETATE 25 MG + 50 MG CAPSULES [Suspect]
     Indication: HEPATO-LENTICULAR DEGENERATION
     Dosage: 150 MILLIGRAM;
     Route: 048
     Dates: start: 20110426
  4. RABEPRAZOLE SODIUM [Concomitant]
     Route: 048
     Dates: start: 20110412

REACTIONS (1)
  - LIVER DISORDER [None]
